FAERS Safety Report 15012603 (Version 1)
Quarter: 2018Q2

REPORT INFORMATION
  Report Type: Spontaneous
  Country: US (occurrence: US)
  Receive Date: 20180522
  Receipt Date: 20180522
  Transmission Date: 20180711
  Serious: Yes (Hospitalization)
  Sender: FDA-Public Use
  Company Number: None

PATIENT
  Age: 75 Year
  Sex: Female
  Weight: 65.7 kg

DRUGS (2)
  1. CARBOPLATIN. [Suspect]
     Active Substance: CARBOPLATIN
     Dates: end: 20180511
  2. TAXOL [Suspect]
     Active Substance: PACLITAXEL
     Dates: end: 20180511

REACTIONS (4)
  - Back pain [None]
  - Neck pain [None]
  - Nausea [None]
  - Metastases to peritoneum [None]

NARRATIVE: CASE EVENT DATE: 20180514
